FAERS Safety Report 10165415 (Version 1)
Quarter: 2014Q2

REPORT INFORMATION
  Report Type: Spontaneous
  Country: US (occurrence: US)
  Receive Date: 20140510
  Receipt Date: 20140510
  Transmission Date: 20141212
  Serious: No
  Sender: FDA-Public Use
  Company Number: US-BRISTOL-MYERS SQUIBB COMPANY-19829209

PATIENT
  Age: 58 Year
  Sex: Female

DRUGS (5)
  1. BYDUREON [Suspect]
     Route: 058
     Dates: start: 2013, end: 2013
  2. METFORMIN HCL [Suspect]
  3. LOTREL [Suspect]
  4. ATORVASTATIN [Suspect]
  5. ACTOS [Suspect]

REACTIONS (1)
  - Vomiting [Unknown]
